FAERS Safety Report 19098646 (Version 10)
Quarter: 2025Q1

REPORT INFORMATION
  Report Type: Spontaneous
  Country: CA (occurrence: CA)
  Receive Date: 20210406
  Receipt Date: 20250212
  Transmission Date: 20250409
  Serious: Yes (Other)
  Sender: TAKEDA
  Company Number: CA-TAKEDA-2021TUS021316

PATIENT
  Age: 72 Year
  Sex: Male

DRUGS (53)
  1. LANSOPRAZOLE [Suspect]
     Active Substance: LANSOPRAZOLE
     Indication: Product used for unknown indication
  2. LANSOPRAZOLE [Suspect]
     Active Substance: LANSOPRAZOLE
  3. LANSOPRAZOLE [Suspect]
     Active Substance: LANSOPRAZOLE
  4. LANSOPRAZOLE [Suspect]
     Active Substance: LANSOPRAZOLE
  5. FENTANYL [Suspect]
     Active Substance: FENTANYL
     Indication: Product used for unknown indication
  6. FENTANYL [Suspect]
     Active Substance: FENTANYL
  7. FENTANYL [Suspect]
     Active Substance: FENTANYL
     Indication: Product used for unknown indication
  8. FENTANYL [Suspect]
     Active Substance: FENTANYL
  9. COSENTYX [Suspect]
     Active Substance: SECUKINUMAB
     Indication: Ankylosing spondylitis
  10. COSENTYX [Suspect]
     Active Substance: SECUKINUMAB
  11. COSENTYX [Suspect]
     Active Substance: SECUKINUMAB
  12. COSENTYX [Suspect]
     Active Substance: SECUKINUMAB
  13. COSENTYX [Suspect]
     Active Substance: SECUKINUMAB
     Dosage: 150 MILLIGRAM, 1/WEEK
  14. COSENTYX [Suspect]
     Active Substance: SECUKINUMAB
  15. COSENTYX [Suspect]
     Active Substance: SECUKINUMAB
     Dosage: 150 MILLIGRAM, 1/WEEK
  16. COSENTYX [Suspect]
     Active Substance: SECUKINUMAB
  17. COSENTYX [Suspect]
     Active Substance: SECUKINUMAB
  18. COSENTYX [Suspect]
     Active Substance: SECUKINUMAB
  19. COSENTYX [Suspect]
     Active Substance: SECUKINUMAB
  20. COSENTYX [Suspect]
     Active Substance: SECUKINUMAB
     Dosage: 300 MILLIGRAM, MONTHLY
  21. COSENTYX [Suspect]
     Active Substance: SECUKINUMAB
  22. COSENTYX [Suspect]
     Active Substance: SECUKINUMAB
  23. COSENTYX [Suspect]
     Active Substance: SECUKINUMAB
     Dosage: 150 MILLIGRAM, 1/WEEK
  24. COSENTYX [Suspect]
     Active Substance: SECUKINUMAB
     Dosage: 150 MILLIGRAM, 1/WEEK
  25. COSENTYX [Suspect]
     Active Substance: SECUKINUMAB
  26. DICLOFENAC DIETHYLAMINE [Suspect]
     Active Substance: DICLOFENAC DIETHYLAMINE
     Indication: Product used for unknown indication
     Dosage: UNK, BID
  27. DICLOFENAC DIETHYLAMINE [Suspect]
     Active Substance: DICLOFENAC DIETHYLAMINE
     Dosage: 2 DOSAGE FORM, QD
  28. DICLOFENAC DIETHYLAMINE [Suspect]
     Active Substance: DICLOFENAC DIETHYLAMINE
     Dosage: UNK, BID
  29. DICLOFENAC SODIUM [Suspect]
     Active Substance: DICLOFENAC SODIUM
     Indication: Product used for unknown indication
  30. DICLOFENAC SODIUM [Suspect]
     Active Substance: DICLOFENAC SODIUM
     Dosage: 2 DOSAGE FORM, QD
  31. DICLOFENAC SODIUM [Suspect]
     Active Substance: DICLOFENAC SODIUM
     Dosage: UNK, Q12H
  32. DICLOFENAC SODIUM [Suspect]
     Active Substance: DICLOFENAC SODIUM
     Dosage: 2 DOSAGE FORM, QD
  33. DEXILANT [Concomitant]
     Active Substance: DEXLANSOPRAZOLE
     Indication: Product used for unknown indication
  34. DEXILANT [Concomitant]
     Active Substance: DEXLANSOPRAZOLE
  35. DILAUDID [Concomitant]
     Active Substance: HYDROMORPHONE HYDROCHLORIDE
     Indication: Product used for unknown indication
  36. DILAUDID [Concomitant]
     Active Substance: HYDROMORPHONE HYDROCHLORIDE
  37. HUMIRA [Concomitant]
     Active Substance: ADALIMUMAB
     Indication: Product used for unknown indication
  38. HUMIRA [Concomitant]
     Active Substance: ADALIMUMAB
  39. HUMIRA [Concomitant]
     Active Substance: ADALIMUMAB
  40. MORPHINE SULFATE [Concomitant]
     Active Substance: MORPHINE SULFATE
     Indication: Product used for unknown indication
  41. MORPHINE SULFATE [Concomitant]
     Active Substance: MORPHINE SULFATE
  42. NABILONE [Concomitant]
     Active Substance: NABILONE
     Indication: Product used for unknown indication
  43. NABILONE [Concomitant]
     Active Substance: NABILONE
     Dosage: 0.25 MILLIGRAM, QD
  44. NABILONE [Concomitant]
     Active Substance: NABILONE
     Dosage: 0.25 MILLIGRAM, QD
  45. NABILONE [Concomitant]
     Active Substance: NABILONE
     Dosage: 25 MILLIGRAM, QD
  46. PHENAGLYCODOL [Concomitant]
     Active Substance: PHENAGLYCODOL
     Indication: Product used for unknown indication
  47. PHENAGLYCODOL [Concomitant]
     Active Substance: PHENAGLYCODOL
  48. PREDNISONE [Concomitant]
     Active Substance: PREDNISONE
     Indication: Product used for unknown indication
  49. PREDNISONE [Concomitant]
     Active Substance: PREDNISONE
  50. SIMPONI [Concomitant]
     Active Substance: GOLIMUMAB
     Indication: Product used for unknown indication
  51. SIMPONI [Concomitant]
     Active Substance: GOLIMUMAB
  52. SIMPONI [Concomitant]
     Active Substance: GOLIMUMAB
  53. ARTHROTEC [Concomitant]
     Active Substance: DICLOFENAC SODIUM\MISOPROSTOL
     Indication: Product used for unknown indication
     Dosage: 50 MILLIGRAM, BID

REACTIONS (32)
  - Kidney infection [Not Recovered/Not Resolved]
  - Muscle spasms [Not Recovered/Not Resolved]
  - Oral herpes [Not Recovered/Not Resolved]
  - Headache [Not Recovered/Not Resolved]
  - Injection site mass [Not Recovered/Not Resolved]
  - Feeling hot [Not Recovered/Not Resolved]
  - Ocular hyperaemia [Not Recovered/Not Resolved]
  - Terminal insomnia [Not Recovered/Not Resolved]
  - Musculoskeletal pain [Not Recovered/Not Resolved]
  - Dry eye [Not Recovered/Not Resolved]
  - Dizziness [Not Recovered/Not Resolved]
  - Pelvic pain [Not Recovered/Not Resolved]
  - Diarrhoea [Not Recovered/Not Resolved]
  - Injection site erythema [Not Recovered/Not Resolved]
  - Arthralgia [Not Recovered/Not Resolved]
  - Burning sensation [Not Recovered/Not Resolved]
  - Musculoskeletal stiffness [Not Recovered/Not Resolved]
  - Back pain [Not Recovered/Not Resolved]
  - Hypotension [Not Recovered/Not Resolved]
  - Malaise [Not Recovered/Not Resolved]
  - Asthenia [Not Recovered/Not Resolved]
  - Abdominal pain upper [Not Recovered/Not Resolved]
  - Drug ineffective [Not Recovered/Not Resolved]
  - Injection site warmth [Not Recovered/Not Resolved]
  - Joint swelling [Not Recovered/Not Resolved]
  - Pain [Not Recovered/Not Resolved]
  - Injection site reaction [Not Recovered/Not Resolved]
  - Hypersensitivity [Not Recovered/Not Resolved]
  - Fatigue [Not Recovered/Not Resolved]
  - Cardiac disorder [Not Recovered/Not Resolved]
  - Pruritus [Not Recovered/Not Resolved]
  - Neck pain [Not Recovered/Not Resolved]
